FAERS Safety Report 26211348 (Version 1)
Quarter: 2025Q4

REPORT INFORMATION
  Report Type: Spontaneous
  Country: EU (occurrence: EU)
  Receive Date: 20251230
  Receipt Date: 20251230
  Transmission Date: 20260117
  Serious: Yes (Hospitalization)
  Sender: TEVA
  Company Number: EU-TEVA-VS-3361536

PATIENT
  Sex: Female

DRUGS (11)
  1. DICLOFENAC [Suspect]
     Active Substance: DICLOFENAC
     Indication: Axial spondyloarthritis
     Route: 065
     Dates: start: 20170101, end: 20220104
  2. DICLOFENAC [Suspect]
     Active Substance: DICLOFENAC
     Indication: Axial spondyloarthritis
     Route: 065
     Dates: start: 20240213
  3. COSENTYX [Suspect]
     Active Substance: SECUKINUMAB
     Indication: Axial spondyloarthritis
     Route: 065
     Dates: start: 20181129, end: 20190401
  4. STELARA [Suspect]
     Active Substance: USTEKINUMAB
     Indication: Axial spondyloarthritis
     Route: 065
     Dates: start: 20220617, end: 20230430
  5. REMICADE [Suspect]
     Active Substance: INFLIXIMAB
     Indication: Axial spondyloarthritis
     Route: 065
     Dates: start: 20200315, end: 20210503
  6. ETANERCEPT [Suspect]
     Active Substance: ETANERCEPT
     Indication: Axial spondyloarthritis
     Route: 065
     Dates: start: 20190401, end: 20200201
  7. METHOTREXATE [Suspect]
     Active Substance: METHOTREXATE
     Indication: Axial spondyloarthritis
     Route: 058
     Dates: start: 20220104, end: 20221113
  8. RINVOQ [Suspect]
     Active Substance: UPADACITINIB
     Indication: Axial spondyloarthritis
     Route: 065
     Dates: start: 20220201, end: 20220607
  9. IBUPROFEN [Suspect]
     Active Substance: IBUPROFEN
     Indication: Axial spondyloarthritis
     Route: 065
     Dates: start: 20220104, end: 20240213
  10. ADALIMUMAB [Suspect]
     Active Substance: ADALIMUMAB
     Indication: Axial spondyloarthritis
     Route: 065
     Dates: start: 20210527, end: 20220104
  11. SULFASALAZINE [Suspect]
     Active Substance: SULFASALAZINE
     Indication: Product used for unknown indication
     Route: 065
     Dates: start: 20250130

REACTIONS (2)
  - Osteoarthritis [Unknown]
  - Knee arthroplasty [Unknown]
